FAERS Safety Report 6851109-4 (Version None)
Quarter: 2010Q3

REPORT INFORMATION
  Report Type: 
  Country: None (occurrence: None)
  Receive Date: 20100716
  Receipt Date: 20071025
  Transmission Date: 20110219
  Serious: No
  Sender: FDA-Public Use
  Company Number: US-PFIZER INC-2007091357

PATIENT
  Sex: Female
  Weight: 61.4 kg

DRUGS (3)
  1. CHANTIX [Suspect]
     Indication: SMOKING CESSATION THERAPY
     Dates: start: 20071013, end: 20071025
  2. PETIBELLE FILMTABLETTEN [Concomitant]
  3. MULTI-VITAMINS [Concomitant]

REACTIONS (8)
  - AFFECT LABILITY [None]
  - DECREASED APPETITE [None]
  - DEPRESSION [None]
  - FATIGUE [None]
  - NAUSEA [None]
  - NIGHTMARE [None]
  - RASH [None]
  - VOMITING [None]
